FAERS Safety Report 14715692 (Version 1)
Quarter: 2018Q2

REPORT INFORMATION
  Report Type: Report from Study
  Country: US (occurrence: US)
  Receive Date: 20180404
  Receipt Date: 20180404
  Transmission Date: 20180711
  Serious: Yes (Death, Hospitalization)
  Sender: FDA-Public Use
  Company Number: US-ACTELION-A-NJ2018-165878

PATIENT
  Age: 57 Year
  Sex: Female
  Weight: 99.77 kg

DRUGS (2)
  1. VELETRI [Suspect]
     Active Substance: EPOPROSTENOL
     Indication: PULMONARY ARTERIAL HYPERTENSION
     Dosage: 2 NG/KG, PER MIN
     Route: 042
  2. ADEMPAS [Concomitant]
     Active Substance: RIOCIGUAT
     Dosage: 2.5 MG, HALF TABLET DOSE

REACTIONS (11)
  - Urinary tract infection [Unknown]
  - Headache [Unknown]
  - Death [Fatal]
  - Dehydration [Unknown]
  - Abdominal distension [Unknown]
  - Dyspnoea [Unknown]
  - Pneumonia [Unknown]
  - Diarrhoea [Unknown]
  - Vomiting [Not Recovered/Not Resolved]
  - Nausea [Not Recovered/Not Resolved]
  - Depression [Unknown]

NARRATIVE: CASE EVENT DATE: 20180327
